FAERS Safety Report 5345596-0 (Version None)
Quarter: 2007Q2

REPORT INFORMATION
  Report Type: 
  Country: None (occurrence: None)
  Receive Date: 20070605
  Receipt Date: 20070316
  Transmission Date: 20071010
  Serious: No
  Sender: FDA-Public Use
  Company Number: US-ASTRAZENECA-2007UW05275

PATIENT
  Age: 76 Year
  Sex: Male

DRUGS (7)
  1. PRILOSEC [Suspect]
     Route: 048
  2. TOPROL-XL [Concomitant]
     Route: 048
  3. FOSAMAX [Concomitant]
  4. LIPITOR [Concomitant]
  5. ASPIRIN [Concomitant]
  6. ALTACE [Concomitant]
  7. DOXAZOSIN MESYLATE [Concomitant]

REACTIONS (1)
  - BONE DENSITY DECREASED [None]
